FAERS Safety Report 5858068-1 (Version None)
Quarter: 2008Q3

REPORT INFORMATION
  Report Type: 
  Country: None (occurrence: None)
  Receive Date: 20080818
  Receipt Date: 20080604
  Transmission Date: 20090109
  Serious: No
  Sender: FDA-Public Use
  Company Number: WAES 0806USA00854

PATIENT
  Age: 61 Year
  Sex: Male
  Weight: 74.3899 kg

DRUGS (4)
  1. JANUVIA [Suspect]
     Indication: TYPE 2 DIABETES MELLITUS
     Dosage: 100 MG/DAILY/PO ; 100 MG/DAILY/PO ; 100 MG/DAILY/PO
     Route: 048
     Dates: start: 20070928, end: 20080301
  2. JANUVIA [Suspect]
  3. JANUVIA [Suspect]
  4. ASPIRIN [Concomitant]

REACTIONS (3)
  - COUGH [None]
  - OBSTRUCTIVE AIRWAYS DISORDER [None]
  - THYROID CYST [None]
